FAERS Safety Report 9832958 (Version 2)
Quarter: 2014Q1

REPORT INFORMATION
  Report Type: Spontaneous
  Country: US (occurrence: US)
  Receive Date: 20140121
  Receipt Date: 20140304
  Transmission Date: 20141002
  Serious: Yes (Hospitalization)
  Sender: FDA-Public Use
  Company Number: US-INCYTE CORPORATION-2014IN000094

PATIENT
  Sex: Female

DRUGS (6)
  1. JAKAFI [Suspect]
     Indication: MYELOFIBROSIS
     Dosage: 15 MG, BID
     Route: 048
  2. COUMADIN                           /00014802/ [Concomitant]
  3. CALCIUM SUPPLEMENT [Concomitant]
  4. LASIX                              /00032601/ [Concomitant]
  5. HORMONE MEDICATION [Concomitant]
  6. STOMACH MEDICATION [Concomitant]

REACTIONS (1)
  - Haemothorax [Recovered/Resolved]
